FAERS Safety Report 8006790-3 (Version None)
Quarter: 2011Q4

REPORT INFORMATION
  Report Type: 
  Country: None (occurrence: None)
  Receive Date: 20111227
  Receipt Date: 20111222
  Transmission Date: 20120403
  Serious: Yes (Hospitalization)
  Sender: FDA-Public Use
  Company Number: PHHY2011JP112397

PATIENT
  Age: 31 Year
  Sex: Female

DRUGS (4)
  1. PHENOBARBITAL TAB [Interacting]
     Dosage: UNK UKN, UNK
     Route: 048
  2. CARBAMAZEPINE [Suspect]
     Indication: SUICIDAL BEHAVIOUR
     Dosage: 3 G, DAILY
     Route: 048
  3. DIAZEPAM [Concomitant]
     Dosage: UNK UKN, UNK
     Route: 048
  4. ACETAMINOPHEN [Interacting]
     Indication: SUICIDAL BEHAVIOUR
     Dosage: 20 G, DAILY
     Route: 048

REACTIONS (6)
  - DRUG INTERACTION [None]
  - TOXICITY TO VARIOUS AGENTS [None]
  - ACUTE HEPATIC FAILURE [None]
  - GRAND MAL CONVULSION [None]
  - SUICIDE ATTEMPT [None]
  - ALTERED STATE OF CONSCIOUSNESS [None]
